FAERS Safety Report 10336449 (Version 2)
Quarter: 2014Q3

REPORT INFORMATION
  Report Type: Spontaneous
  Country: US (occurrence: US)
  Receive Date: 20140723
  Receipt Date: 20140723
  Transmission Date: 20150326
  Serious: No
  Sender: FDA-Public Use
  Company Number: US-BRISTOL-MYERS SQUIBB COMPANY-20653309

PATIENT
  Age: 77 Year
  Sex: Female
  Weight: 95.24 kg

DRUGS (1)
  1. COUMADIN [Suspect]
     Active Substance: WARFARIN SODIUM

REACTIONS (4)
  - International normalised ratio fluctuation [Unknown]
  - Suspected counterfeit product [Unknown]
  - Seasonal allergy [Unknown]
  - Expired product administered [Unknown]
